FAERS Safety Report 15795725 (Version 1)
Quarter: 2019Q1

REPORT INFORMATION
  Report Type: Spontaneous
  Country: ES (occurrence: ES)
  Receive Date: 20190107
  Receipt Date: 20190107
  Transmission Date: 20190417
  Serious: Yes (Life-Threatening, Hospitalization)
  Sender: FDA-Public Use
  Company Number: ES-MYLANLABS-2018M1098175

PATIENT
  Age: 79 Year
  Sex: Female

DRUGS (2)
  1. CAPECITABINE. [Suspect]
     Active Substance: CAPECITABINE
     Indication: BREAST CANCER FEMALE
     Dosage: IN DAYS 1-14, 2 WEEKS ON AND 1 WEEK OFF; CUMULATIVE DOSE: 26G
     Route: 065
  2. LOPERAMIDE [Suspect]
     Active Substance: LOPERAMIDE
     Indication: DIARRHOEA
     Dosage: GIVEN AT A STANDARD DOSE BUT THE DOSE NOT SPECIFIED
     Route: 065

REACTIONS (22)
  - Blood potassium decreased [Unknown]
  - Mucosal inflammation [Unknown]
  - Alopecia [Recovered/Resolved]
  - International normalised ratio increased [Unknown]
  - White blood cell count decreased [Unknown]
  - Weight decreased [Unknown]
  - Pyrexia [Unknown]
  - Dysphagia [Unknown]
  - Drug ineffective [Unknown]
  - Diarrhoea [Unknown]
  - Odynophagia [Unknown]
  - Toxicity to various agents [Unknown]
  - Nausea [Unknown]
  - Thrombocytopenia [Recovering/Resolving]
  - Blood calcium decreased [Unknown]
  - Blood phosphorus decreased [Unknown]
  - Neutropenia [Unknown]
  - Palmar-plantar erythrodysaesthesia syndrome [Unknown]
  - Anaemia [Unknown]
  - Asthenia [Unknown]
  - Blood magnesium decreased [Unknown]
  - Protein total decreased [Unknown]
